FAERS Safety Report 6419423-4 (Version None)
Quarter: 2009Q4

REPORT INFORMATION
  Report Type: 
  Country: None (occurrence: None)
  Receive Date: 20091013
  Receipt Date: 20090402
  Transmission Date: 20100525
  Serious: Yes (Other)
  Sender: FDA-Public Use
  Company Number: 1000005617

PATIENT
  Sex: Male

DRUGS (3)
  1. LEXAPRO [Suspect]
  2. SEROQUEL [Concomitant]
  3. VIAGRA [Concomitant]

REACTIONS (1)
  - PRIAPISM [None]
